FAERS Safety Report 6885096-X (Version None)
Quarter: 2010Q3

REPORT INFORMATION
  Report Type: 
  Country: None (occurrence: None)
  Receive Date: 20100729
  Receipt Date: 20100721
  Transmission Date: 20110219
  Serious: Yes (Hospitalization)
  Sender: FDA-Public Use
  Company Number: JP-ELI_LILLY_AND_COMPANY-JP201007000010

PATIENT
  Sex: Male
  Weight: 65.5 kg

DRUGS (3)
  1. ALIMTA [Suspect]
     Indication: LIVER DISORDER
     Dosage: 750 MG, OTHER
     Route: 042
  2. PANVITAN [Concomitant]
     Route: 048
  3. HYDROXOCOBALAMINE [Concomitant]

REACTIONS (3)
  - LIVER DISORDER [None]
  - PLATELET COUNT DECREASED [None]
  - WHITE BLOOD CELL COUNT DECREASED [None]
